FAERS Safety Report 7686396-6 (Version None)
Quarter: 2011Q3

REPORT INFORMATION
  Report Type: 
  Country: None (occurrence: None)
  Receive Date: 20110816
  Receipt Date: 20110803
  Transmission Date: 20111222
  Serious: Yes (Other)
  Sender: FDA-Public Use
  Company Number: GB-ELI_LILLY_AND_COMPANY-GB201107007540

PATIENT

DRUGS (2)
  1. ALCOHOL [Concomitant]
  2. PROZAC [Suspect]
     Indication: DEPRESSION
     Dosage: UNK
     Dates: start: 20040201

REACTIONS (7)
  - FEAR [None]
  - PHYSICAL ASSAULT [None]
  - ABNORMAL BEHAVIOUR [None]
  - CONFUSIONAL STATE [None]
  - DRUG INEFFECTIVE [None]
  - COMA [None]
  - AMNESIA [None]
